FAERS Safety Report 19128830 (Version 1)
Quarter: 2021Q2

REPORT INFORMATION
  Report Type: Spontaneous
  Country: US (occurrence: US)
  Receive Date: 20210413
  Receipt Date: 20210413
  Transmission Date: 20210717
  Serious: No
  Sender: FDA-Public Use
  Company Number: US-ALLERGAN-2048578US

PATIENT

DRUGS (1)
  1. LATISSE [Suspect]
     Active Substance: BIMATOPROST
     Indication: PRODUCT USED FOR UNKNOWN INDICATION
     Dosage: UNK

REACTIONS (4)
  - Erythema of eyelid [Recovered/Resolved]
  - Blepharal pigmentation [Recovered/Resolved]
  - Eyelids pruritus [Recovered/Resolved]
  - Eyelid irritation [Recovered/Resolved]
